FAERS Safety Report 20394586 (Version 1)
Quarter: 2022Q1

REPORT INFORMATION
  Report Type: Spontaneous
  Country: EG (occurrence: EG)
  Receive Date: 20220129
  Receipt Date: 20220129
  Transmission Date: 20220424
  Serious: Yes (Other)
  Sender: FDA-Public Use
  Company Number: EG-NOVARTISPH-NVSC2022EG017320

PATIENT
  Age: 51 Year
  Sex: Female

DRUGS (9)
  1. FEMARA [Suspect]
     Active Substance: LETROZOLE
     Indication: Breast cancer metastatic
     Dosage: 1 DOSAGE FORM, QD
     Route: 065
     Dates: start: 2018, end: 20220105
  2. BISOPROLOL FUMARATE [Concomitant]
     Active Substance: BISOPROLOL FUMARATE
     Indication: Hypertension
     Dosage: 0.5 DOSAGE FORM, BID
     Route: 065
     Dates: start: 2019
  3. SOLPADEIN [Concomitant]
     Indication: Analgesic therapy
     Dosage: UNK
     Route: 065
     Dates: start: 202201
  4. EPIDRON [Concomitant]
     Indication: Pain
     Dosage: 6 DOSAGE FORM (2 WEEKS AGO)
     Route: 065
  5. COLOVERIN [Concomitant]
     Indication: Product used for unknown indication
     Dosage: UNK (WHEN NEEDED)
     Route: 065
     Dates: start: 2021
  6. EPOSINO [Concomitant]
     Indication: Anaemia
     Dosage: 3 DOSAGE FORM, QW
     Route: 065
     Dates: start: 20220120
  7. EPOSINO [Concomitant]
     Indication: Mineral supplementation
  8. URSOPLUS [Concomitant]
     Indication: Nutritional supplementation
     Dosage: 1 DOSAGE FORM, QD
     Route: 065
     Dates: start: 20220115
  9. FASLODEX [Concomitant]
     Active Substance: FULVESTRANT
     Indication: Product used for unknown indication
     Dosage: UNK
     Route: 065
     Dates: start: 20220106

REACTIONS (5)
  - Symptom recurrence [Recovering/Resolving]
  - Anaemia [Unknown]
  - Hepatic enzyme increased [Unknown]
  - White blood cell count increased [Unknown]
  - Tumour marker increased [Recovering/Resolving]

NARRATIVE: CASE EVENT DATE: 20220115
